FAERS Safety Report 4694314-8 (Version None)
Quarter: 2005Q2

REPORT INFORMATION
  Report Type: 
  Country: None (occurrence: None)
  Receive Date: 20050620
  Receipt Date: 20050607
  Transmission Date: 20051028
  Serious: Yes (Hospitalization)
  Sender: FDA-Public Use
  Company Number: JP-JNJFOC-20041008014

PATIENT
  Sex: Female
  Weight: 49.5 kg

DRUGS (11)
  1. REMICADE [Suspect]
     Indication: RHEUMATOID ARTHRITIS
     Route: 042
  2. RHEUMATREX [Suspect]
     Route: 049
  3. RHEUMATREX [Suspect]
     Indication: RHEUMATOID ARTHRITIS
     Route: 049
  4. PREDONINE [Suspect]
     Indication: RHEUMATOID ARTHRITIS
     Route: 049
  5. MOBIC [Suspect]
     Indication: RHEUMATOID ARTHRITIS
     Route: 049
  6. GASTER [Suspect]
     Indication: DRUG USE FOR UNKNOWN INDICATION
     Route: 049
  7. ISONIAZID [Suspect]
     Route: 049
  8. POLARAMINE [Suspect]
     Indication: DRUG USE FOR UNKNOWN INDICATION
     Route: 049
  9. LOXONIN [Suspect]
     Indication: PREMEDICATION
  10. ESTRIOL [Concomitant]
     Route: 049
  11. NIPOLAZIN [Concomitant]
     Indication: PREMEDICATION

REACTIONS (4)
  - BLOOD PRESSURE INCREASED [None]
  - HEADACHE [None]
  - NAUSEA [None]
  - VOMITING [None]
